FAERS Safety Report 5109555-5 (Version None)
Quarter: 2006Q3

REPORT INFORMATION
  Report Type: 
  Country: None (occurrence: None)
  Receive Date: 20060731
  Receipt Date: 20060404
  Transmission Date: 20061208
  Serious: No
  Sender: FDA-Public Use
  Company Number: 2006PV011519

PATIENT
  Age: 49 Year
  Sex: Male
  Weight: 114.3065 kg

DRUGS (5)
  1. BYETTA [Suspect]
     Indication: DIABETES MELLITUS NON-INSULIN-DEPENDENT
     Dosage: 5 MCG BID SC
     Route: 058
     Dates: start: 20060403
  2. ACTOS PLUS [Concomitant]
  3. AVANDAMET [Concomitant]
  4. ACTOS [Concomitant]
  5. GLIPIZIDE [Concomitant]

REACTIONS (5)
  - ABDOMINAL DISTENSION [None]
  - DRUG INEFFECTIVE [None]
  - EMOTIONAL DISTRESS [None]
  - MEDICATION ERROR [None]
  - NO ADVERSE EFFECT [None]
